FAERS Safety Report 15419148 (Version 1)
Quarter: 2018Q3

REPORT INFORMATION
  Report Type: Spontaneous
  Country: CN (occurrence: CN)
  Receive Date: 20180924
  Receipt Date: 20180924
  Transmission Date: 20181010
  Serious: Yes (Other)
  Sender: FDA-Public Use
  Company Number: CN-JNJFOC-20180917053

PATIENT
  Sex: Male

DRUGS (2)
  1. ZYTIGA [Suspect]
     Active Substance: ABIRATERONE ACETATE
     Indication: HORMONE-REFRACTORY PROSTATE CANCER
     Route: 048
     Dates: start: 201510, end: 201710
  2. PREDNISONE. [Suspect]
     Active Substance: PREDNISONE
     Indication: HORMONE-REFRACTORY PROSTATE CANCER
     Route: 048
     Dates: start: 201510, end: 201710

REACTIONS (5)
  - Blood potassium decreased [Recovering/Resolving]
  - Cardiac disorder [Recovering/Resolving]
  - Liver injury [Recovering/Resolving]
  - Oedema peripheral [Recovering/Resolving]
  - Blood pressure increased [Recovering/Resolving]
